FAERS Safety Report 7551301-X (Version None)
Quarter: 2011Q2

REPORT INFORMATION
  Report Type: 
  Country: None (occurrence: None)
  Receive Date: 20110616
  Receipt Date: 20110531
  Transmission Date: 20111010
  Serious: Yes (Other)
  Sender: FDA-Public Use
  Company Number: US-BAYER-2011-006590

PATIENT
  Age: 64 Year
  Sex: Male

DRUGS (8)
  1. ENALAPRIL MALEATE [Concomitant]
  2. RED BLOOD CELLS [Concomitant]
     Dosage: 250 ML
     Dates: start: 19980627, end: 19980627
  3. LASIX [Concomitant]
     Dosage: 20 MG
     Route: 042
     Dates: start: 19980626, end: 19980626
  4. HEPARIN [Concomitant]
     Dosage: 10,000 UNITS
     Route: 042
     Dates: start: 19980627, end: 19980627
  5. TRASYLOL [Suspect]
     Indication: CORONARY ARTERY BYPASS
     Dosage: INITAL TEST DOSE OF 1 ML
     Route: 042
     Dates: start: 19980627, end: 19980627
  6. TRASYLOL [Suspect]
     Dosage: LOADING DOSE OF 100 ML LOADING DOSE FOLLOWED BY 25 ML/HOUR INFUSION
     Route: 042
     Dates: start: 19980627, end: 19980627
  7. DILTIAZEM [Concomitant]
  8. NITROGLYCERIN [Concomitant]

REACTIONS (12)
  - RENAL INJURY [None]
  - CEREBROVASCULAR ACCIDENT [None]
  - UNEVALUABLE EVENT [None]
  - MULTI-ORGAN FAILURE [None]
  - RENAL FAILURE [None]
  - ANXIETY [None]
  - PAIN [None]
  - EMOTIONAL DISORDER [None]
  - STRESS [None]
  - FEAR [None]
  - INJURY [None]
  - RENAL IMPAIRMENT [None]
